FAERS Safety Report 6266556-1 (Version None)
Quarter: 2009Q3

REPORT INFORMATION
  Report Type: 
  Country: None (occurrence: None)
  Receive Date: 20090713
  Receipt Date: 20090702
  Transmission Date: 20100115
  Serious: Yes (Other)
  Sender: FDA-Public Use
  Company Number: US-WATSON-2009-05116

PATIENT
  Sex: Female

DRUGS (2)
  1. FENTANYL-75 [Suspect]
     Indication: PAIN
     Dosage: APPLY 1 PATCH, Q 60 HRS
     Route: 062
     Dates: start: 20090401
  2. FENTANYL-75 [Suspect]
     Dosage: APPLY 1 PATCH, Q 72 HRS
     Route: 062
     Dates: start: 20090101, end: 20090401

REACTIONS (4)
  - CONVULSION [None]
  - DRUG INEFFECTIVE [None]
  - MUSCLE SPASMS [None]
  - RESTLESS LEGS SYNDROME [None]
